FAERS Safety Report 5191438-6 (Version None)
Quarter: 2006Q4

REPORT INFORMATION
  Report Type: 
  Country: None (occurrence: None)
  Receive Date: 20061226
  Receipt Date: 20020718
  Transmission Date: 20070319
  Serious: Yes (Hospitalization)
  Sender: FDA-Public Use
  Company Number: FR-MERCK-0207USA01655

PATIENT
  Age: 81 Year
  Sex: Female

DRUGS (6)
  1. MODURETIC 5-50 [Suspect]
     Route: 048
  2. LORAZEPAM [Suspect]
     Route: 065
  3. AREDIA [Suspect]
     Route: 042
     Dates: start: 20020705, end: 20020705
  4. AREDIA [Suspect]
     Route: 042
     Dates: start: 20020626
  5. AREDIA [Suspect]
     Route: 042
     Dates: start: 20020507
  6. ACETAMINOPHEN AND CODEINE [Concomitant]
     Route: 065

REACTIONS (5)
  - ANOREXIA [None]
  - ASTHENIA [None]
  - NECROSIS ISCHAEMIC [None]
  - PULMONARY OEDEMA [None]
  - WEIGHT DECREASED [None]
